FAERS Safety Report 5692714-0 (Version None)
Quarter: 2008Q2

REPORT INFORMATION
  Report Type: 
  Country: None (occurrence: None)
  Receive Date: 20080401
  Receipt Date: 20080326
  Transmission Date: 20081010
  Serious: Yes (Hospitalization)
  Sender: FDA-Public Use
  Company Number: L08-USA-01003-01

PATIENT
  Age: 44 Year
  Sex: Female

DRUGS (10)
  1. CITALOPRAM HYDROBROMIDE [Suspect]
  2. PREDNISONE [Suspect]
     Dosage: 50 MG QD
  3. OXYCODONE HCL [Suspect]
  4. LORAZEPAM [Suspect]
  5. ZINC [Suspect]
  6. ALENDRONATE SODIUM [Suspect]
  7. GABAPENTIN [Suspect]
  8. ERYTHROMYCIN [Suspect]
  9. MUPIROCIN [Suspect]
  10. MORPHINE SULFATE [Suspect]

REACTIONS (18)
  - ALANINE AMINOTRANSFERASE INCREASED [None]
  - BLOOD ALBUMIN DECREASED [None]
  - BLOOD ALKALINE PHOSPHATASE INCREASED [None]
  - BLOOD CHLORIDE DECREASED [None]
  - BLOOD GLUCOSE INCREASED [None]
  - CORNEAL DISORDER [None]
  - DERMATITIS EXFOLIATIVE [None]
  - ECZEMA [None]
  - GLOBULINS INCREASED [None]
  - GRAFT VERSUS HOST DISEASE [None]
  - HAEMATOCRIT DECREASED [None]
  - HAEMOGLOBIN DECREASED [None]
  - MYCOSIS FUNGOIDES [None]
  - PARAKERATOSIS [None]
  - PLATELET COUNT INCREASED [None]
  - PSORIASIS [None]
  - STEM CELL TRANSPLANT [None]
  - SUPERINFECTION [None]
